FAERS Safety Report 11910614 (Version 1)
Quarter: 2016Q1

REPORT INFORMATION
  Report Type: Spontaneous
  Country: US (occurrence: US)
  Receive Date: 20160112
  Receipt Date: 20160112
  Transmission Date: 20160526
  Serious: No
  Sender: FDA-Public Use
  Company Number: US-GLAXOSMITHKLINE-US2016003366

PATIENT
  Age: 57 Year
  Sex: Female

DRUGS (1)
  1. ABREVA [Suspect]
     Active Substance: DOCOSANOL
     Indication: GENITAL ABSCESS
     Dosage: UNK
     Dates: start: 201512

REACTIONS (6)
  - Genital pain [Unknown]
  - Cystitis [Recovered/Resolved]
  - Product use issue [Unknown]
  - Micturition urgency [Unknown]
  - Genital burning sensation [Unknown]
  - Soft tissue injury [Unknown]

NARRATIVE: CASE EVENT DATE: 201512
